FAERS Safety Report 15866361 (Version 7)
Quarter: 2020Q1

REPORT INFORMATION
  Report Type: Spontaneous
  Country: US (occurrence: US)
  Receive Date: 20190125
  Receipt Date: 20200122
  Transmission Date: 20200409
  Serious: No
  Sender: FDA-Public Use
  Company Number: US-PFIZER INC-2019033104

PATIENT
  Age: 68 Year
  Sex: Female
  Weight: 63.5 kg

DRUGS (6)
  1. DICLOFENAC [Concomitant]
     Active Substance: DICLOFENAC
     Indication: ARTHRITIS
     Dosage: 75 MG, UNK
  2. PREMARIN [Suspect]
     Active Substance: ESTROGENS, CONJUGATED
     Dosage: 0.625 MG, UNK (1 EVERY 3 DAYS)
     Route: 048
  3. PREMARIN [Suspect]
     Active Substance: ESTROGENS, CONJUGATED
     Indication: HOT FLUSH
     Dosage: UNK, ALTERNATE DAY (I TAKE ONE EVERY OTHER DAY)
  4. PREMARIN [Suspect]
     Active Substance: ESTROGENS, CONJUGATED
     Dosage: UNK, 1X/DAY (I HAVE BEEN TAKING ONE A DAY)
  5. PREMARIN [Suspect]
     Active Substance: ESTROGENS, CONJUGATED
     Dosage: 0.625 MG, ALTERNATE DAY (TAKE 1 TABLET (0.625 MG TOTAL) BY MOUTH EVERY OTHER DAY)
     Route: 048
     Dates: start: 20191210
  6. PREMARIN [Suspect]
     Active Substance: ESTROGENS, CONJUGATED
     Dosage: UNK, (I^M CUTTING BACK ON IT A LITTLE BIT.^)

REACTIONS (2)
  - Intentional product misuse [Unknown]
  - Insomnia [Unknown]
